FAERS Safety Report 23541819 (Version 1)
Quarter: 2024Q1

REPORT INFORMATION
  Report Type: Spontaneous
  Country: ES (occurrence: ES)
  Receive Date: 20240220
  Receipt Date: 20240220
  Transmission Date: 20240410
  Serious: Yes (Other)
  Sender: FDA-Public Use
  Company Number: ES-AEMPS-1482627

PATIENT
  Age: 10 Year
  Sex: Male

DRUGS (2)
  1. TRAMADOL [Suspect]
     Active Substance: TRAMADOL\TRAMADOL HYDROCHLORIDE
     Indication: Product used for unknown indication
     Dosage: UNK
     Route: 065
     Dates: start: 20240127
  2. METAMIZOLE\PROPOXYPHENE [Suspect]
     Active Substance: METAMIZOLE\PROPOXYPHENE
     Indication: Product used for unknown indication
     Dosage: UNK
     Route: 065
     Dates: start: 20240127

REACTIONS (2)
  - Unresponsive to stimuli [Unknown]
  - Incorrect dosage administered [Unknown]

NARRATIVE: CASE EVENT DATE: 20240127
